FAERS Safety Report 4735765-2 (Version None)
Quarter: 2005Q3

REPORT INFORMATION
  Report Type: 
  Country: None (occurrence: None)
  Receive Date: 20050805
  Receipt Date: 20050708
  Transmission Date: 20060218
  Serious: Yes (Disabling, Other)
  Sender: FDA-Public Use
  Company Number: 200512297FR

PATIENT
  Age: 41 Year
  Sex: Female

DRUGS (5)
  1. OFLOCET [Suspect]
     Route: 048
     Dates: start: 20041201, end: 20041201
  2. PYOSTACINE [Suspect]
     Route: 048
     Dates: start: 20031201, end: 20040313
  3. KETEK [Suspect]
     Route: 048
     Dates: start: 20031201, end: 20031201
  4. AUGMENTIN '125' [Suspect]
     Route: 048
     Dates: start: 20031201, end: 20031201
  5. FOLLISTIM AQ [Suspect]
     Dates: start: 20041201

REACTIONS (3)
  - ARTHRALGIA [None]
  - DIFFICULTY IN WALKING [None]
  - URTICARIA [None]
